FAERS Safety Report 7596324-X (Version None)
Quarter: 2011Q3

REPORT INFORMATION
  Report Type: 
  Country: None (occurrence: None)
  Receive Date: 20110707
  Receipt Date: 20110627
  Transmission Date: 20111222
  Serious: Yes (Hospitalization, Other)
  Sender: FDA-Public Use
  Company Number: US-BAXTER-2011BH020587

PATIENT
  Sex: Male

DRUGS (2)
  1. PREDNISONE [Suspect]
     Indication: TEMPORAL ARTERITIS
     Route: 048
  2. DIANEAL [Suspect]
     Indication: PERITONEAL DIALYSIS
     Route: 033

REACTIONS (8)
  - CANDIDIASIS [None]
  - PSYCHOTIC DISORDER [None]
  - DECUBITUS ULCER [None]
  - ASTHENIA [None]
  - ANAEMIA [None]
  - OESOPHAGITIS [None]
  - STOMATITIS [None]
  - FLUID OVERLOAD [None]
